FAERS Safety Report 21364456 (Version 2)
Quarter: 2022Q3

REPORT INFORMATION
  Report Type: Spontaneous
  Country: HR (occurrence: HR)
  Receive Date: 20220922
  Receipt Date: 20220926
  Transmission Date: 20221027
  Serious: Yes (Other)
  Sender: FDA-Public Use
  Company Number: None

PATIENT
  Age: 17 Year
  Sex: Male
  Weight: 50 kg

DRUGS (4)
  1. CONTROLOC [Suspect]
     Active Substance: PANTOPRAZOLE SODIUM
     Dosage: UNK
     Route: 048
     Dates: start: 20220731, end: 20220731
  2. XANAX [Suspect]
     Active Substance: ALPRAZOLAM
     Dosage: 30 MG, 1X/DAY
     Dates: start: 20220731, end: 20220731
  3. TROSPIUM CHLORIDE [Suspect]
     Active Substance: TROSPIUM CHLORIDE
     Dosage: 150 MILLIGRAM, QD
     Route: 048
     Dates: start: 20220731, end: 20220731
  4. FEVARIN [Suspect]
     Active Substance: FLUVOXAMINE MALEATE
     Dosage: UNK
     Route: 048
     Dates: start: 20220731, end: 20220731

REACTIONS (8)
  - Intentional overdose [Unknown]
  - Suicide attempt [Unknown]
  - Erythema [Unknown]
  - Somnolence [Unknown]
  - Communication disorder [Unknown]
  - Hyperthermia [Unknown]
  - Dry mouth [Unknown]
  - Tachycardia [Unknown]

NARRATIVE: CASE EVENT DATE: 20220731
